FAERS Safety Report 15642713 (Version 2)
Quarter: 2019Q1

REPORT INFORMATION
  Report Type: Report from Study
  Country: None (occurrence: US)
  Receive Date: 20181121
  Receipt Date: 20190127
  Transmission Date: 20190417
  Serious: Yes (Hospitalization)
  Sender: FDA-Public Use
  Company Number: US-ABBVIE-18K-163-2563384-00

PATIENT
  Age: 72 Year
  Sex: Female

DRUGS (1)
  1. HUMIRA [Suspect]
     Active Substance: ADALIMUMAB
     Indication: RHEUMATOID ARTHRITIS
     Route: 058

REACTIONS (6)
  - Injection site pain [Unknown]
  - Vitamin D decreased [Unknown]
  - Road traffic accident [Unknown]
  - Lung infection [Unknown]
  - Arthralgia [Unknown]
  - Back injury [Unknown]

NARRATIVE: CASE EVENT DATE: 2018
